FAERS Safety Report 4899081-0 (Version None)
Quarter: 2006Q1

REPORT INFORMATION
  Report Type: 
  Country: None (occurrence: None)
  Receive Date: 20060202
  Receipt Date: 20051205
  Transmission Date: 20060701
  Serious: Yes (Other)
  Sender: FDA-Public Use
  Company Number: 2005UW18596

PATIENT
  Age: 65 Year
  Sex: Female

DRUGS (5)
  1. ACCOLATE [Suspect]
     Indication: ASTHMA
     Route: 048
  2. CARBAMAZEPINE [Concomitant]
     Indication: BIPOLAR DISORDER
  3. NOZINAN [Concomitant]
  4. ALTACE [Concomitant]
     Indication: HYPERTENSION
  5. SYNTHROID [Concomitant]

REACTIONS (5)
  - ABDOMINAL DISTENSION [None]
  - HEPATIC ENZYME INCREASED [None]
  - LOSS OF CONSCIOUSNESS [None]
  - STOMACH DISCOMFORT [None]
  - WHITE BLOOD CELL COUNT INCREASED [None]
